FAERS Safety Report 9658355 (Version 2)
Quarter: 2013Q4

REPORT INFORMATION
  Report Type: Spontaneous
  Country: US (occurrence: US)
  Receive Date: 20131030
  Receipt Date: 20131030
  Transmission Date: 20140711
  Serious: No
  Sender: FDA-Public Use
  Company Number: US-PURDUE-USA-2012-0082855

PATIENT
  Sex: Female

DRUGS (3)
  1. OXYCONTIN (NDA 22-272) [Suspect]
     Indication: PAIN
     Dosage: 160 MG, Q8H
  2. OXYCONTIN (NDA 22-272) [Suspect]
     Dosage: 160 MG, Q12H
  3. ENDOCET [Concomitant]
     Indication: BREAKTHROUGH PAIN
     Dosage: 2 10/325 MG TABLET, 8-10 DOSES DAILY

REACTIONS (5)
  - Drug ineffective [Unknown]
  - Drug effect decreased [Unknown]
  - Pain [Not Recovered/Not Resolved]
  - Breakthrough pain [Not Recovered/Not Resolved]
  - Drug tolerance [Unknown]
